FAERS Safety Report 6209156-1 (Version None)
Quarter: 2009Q2

REPORT INFORMATION
  Report Type: 
  Country: None (occurrence: None)
  Receive Date: 20090522
  Receipt Date: 20090313
  Transmission Date: 20091009
  Serious: No
  Sender: FDA-Public Use
  Company Number: 8044075

PATIENT
  Age: 52 Year
  Sex: Male

DRUGS (6)
  1. CIMZIA [Suspect]
     Indication: CROHN'S DISEASE
     Dosage: 400 MG SC
     Route: 058
     Dates: start: 20090101
  2. IMURAN [Concomitant]
  3. PENTASA [Concomitant]
  4. NEXIUM [Concomitant]
  5. CHOLESTYRAMINE [Concomitant]
  6. PRAVASTATIN [Concomitant]

REACTIONS (1)
  - RHINORRHOEA [None]
